FAERS Safety Report 11196773 (Version 1)
Quarter: 2015Q2

REPORT INFORMATION
  Report Type: Spontaneous
  Country: CH (occurrence: ES)
  Receive Date: 20150617
  Receipt Date: 20150617
  Transmission Date: 20150821
  Serious: Yes (Hospitalization)
  Sender: FDA-Public Use
  Company Number: CH-LPDUSPRD-20150437

PATIENT
  Age: 94 Year
  Sex: Male

DRUGS (11)
  1. FERINJECT [Suspect]
     Active Substance: FERRIC CARBOXYMALTOSE
     Dosage: DOSE NOT PROVIDED
     Route: 042
     Dates: start: 20140805, end: 20140805
  2. IRBESARTAN. [Concomitant]
     Active Substance: IRBESARTAN
     Dosage: HYPERTENSION
     Route: 048
     Dates: start: 20140801
  3. METAMIZOLE MAGNESIUM [Concomitant]
     Active Substance: METAMIZOLE MAGNESIUM
     Dosage: 2 GM FOR 5 DAYS
     Route: 042
     Dates: start: 20140801
  4. LACTITOL [Concomitant]
     Active Substance: LACTITOL
     Dosage: 1 DOSAGE FORM FOR 5 DAYS
     Route: 048
     Dates: start: 20140801
  5. CALCIFEDIOL [Concomitant]
     Active Substance: CALCIFEDIOL
     Dosage: 3 MG, 1 IN1 D
     Route: 048
     Dates: start: 20140805, end: 20140805
  6. ZOPICLONE [Concomitant]
     Active Substance: ZOPICLONE
     Dosage: 7.5 MG FOR 5 DAYS
     Route: 048
     Dates: start: 20140801
  7. ALLOPURINOL. [Concomitant]
     Active Substance: ALLOPURINOL
     Dosage: 100 MG, FOR 5 DAYS
     Route: 048
     Dates: start: 20140801
  8. CEFAZOLIN SODIUM. [Concomitant]
     Active Substance: CEFAZOLIN SODIUM
     Dosage: 1 GM FOR 3 DAYS
     Route: 042
     Dates: start: 20140801
  9. OMEPRAZOLE. [Concomitant]
     Active Substance: OMEPRAZOLE
     Dosage: 20 MG, FOR 5 DAYS
     Route: 042
     Dates: start: 20140801
  10. CLEXANE [Concomitant]
     Active Substance: ENOXAPARIN SODIUM
     Dosage: 40 MG FOR 5 DAYS
     Route: 058
     Dates: start: 20140801
  11. PARACETAMOL [Concomitant]
     Active Substance: ACETAMINOPHEN
     Dosage: 1 GM FOR 5 DAYS
     Route: 042
     Dates: start: 20140801

REACTIONS (3)
  - Bronchospasm [Recovered/Resolved]
  - Tachycardia [Recovered/Resolved]
  - Hypertension [Recovered/Resolved]

NARRATIVE: CASE EVENT DATE: 20140805
